FAERS Safety Report 23083730 (Version 2)
Quarter: 2023Q4

REPORT INFORMATION
  Report Type: Spontaneous
  Country: US (occurrence: US)
  Receive Date: 20231019
  Receipt Date: 20231019
  Transmission Date: 20240109
  Serious: Yes (Death, Hospitalization, Other)
  Sender: FDA-Public Use
  Company Number: US-MLMSERVICE-20231005-4588349-1

PATIENT
  Age: 75 Year
  Sex: Female

DRUGS (1)
  1. FILGRASTIM [Suspect]
     Active Substance: FILGRASTIM
     Indication: Neutropenia
     Dosage: UNK

REACTIONS (3)
  - Death [Fatal]
  - Leukaemoid reaction [Recovered/Resolved]
  - Mental status changes [Recovered/Resolved]
